FAERS Safety Report 23309134 (Version 1)
Quarter: 2023Q4

REPORT INFORMATION
  Report Type: Spontaneous
  Country: AU (occurrence: AU)
  Receive Date: 20231218
  Receipt Date: 20231218
  Transmission Date: 20240110
  Serious: Yes (Other)
  Sender: FDA-Public Use
  Company Number: AU-OTSUKA-2023_032190

PATIENT
  Sex: Female

DRUGS (3)
  1. ABILIFY [Suspect]
     Active Substance: ARIPIPRAZOLE
     Indication: Product used for unknown indication
     Dosage: UNK
     Route: 065
  2. EPILIM [Suspect]
     Active Substance: VALPROATE SODIUM
     Indication: Product used for unknown indication
     Dosage: UNK
     Route: 065
  3. LITHIUM [Suspect]
     Active Substance: LITHIUM
     Indication: Product used for unknown indication
     Dosage: UNK
     Route: 065

REACTIONS (13)
  - Internal haemorrhage [Unknown]
  - Suicidal ideation [Unknown]
  - Syncope [Unknown]
  - Osteopenia [Unknown]
  - Osteoporosis [Unknown]
  - Limb discomfort [Unknown]
  - Psychotic disorder [Unknown]
  - Peripheral swelling [Unknown]
  - Arthritis [Unknown]
  - Feeling abnormal [Unknown]
  - Gait disturbance [Unknown]
  - Hypertension [Unknown]
  - Weight decreased [Unknown]
